FAERS Safety Report 21214982 (Version 1)
Quarter: 2022Q3

REPORT INFORMATION
  Report Type: Other
  Country: US (occurrence: None)
  Receive Date: 20220816
  Receipt Date: 20220816
  Transmission Date: 20221026
  Serious: Yes (Hospitalization)
  Sender: FDA-Public Use
  Company Number: US-ROCHE-2805124

PATIENT
  Sex: Male
  Weight: 111.23 kg

DRUGS (13)
  1. XOLAIR [Suspect]
     Active Substance: OMALIZUMAB
     Indication: Urticaria
     Route: 058
     Dates: start: 2019
  2. XOLAIR [Suspect]
     Active Substance: OMALIZUMAB
  3. XOLAIR [Suspect]
     Active Substance: OMALIZUMAB
  4. XOLAIR [Suspect]
     Active Substance: OMALIZUMAB
     Indication: Idiopathic urticaria
     Route: 058
  5. XOLAIR [Suspect]
     Active Substance: OMALIZUMAB
  6. XOLAIR [Suspect]
     Active Substance: OMALIZUMAB
  7. SYNTHROID [Concomitant]
     Active Substance: LEVOTHYROXINE SODIUM
     Dosage: ONGOING: YES
     Route: 048
     Dates: start: 202010
  8. PEPCID [Concomitant]
     Active Substance: FAMOTIDINE
     Indication: Urticaria
     Dosage: ONGOING: YES
     Route: 048
     Dates: start: 2019
  9. SINGULAIR [Concomitant]
     Active Substance: MONTELUKAST SODIUM
     Indication: Asthma
     Dosage: ONGOING: YES
     Route: 048
  10. ALLEGRA [Concomitant]
     Active Substance: FEXOFENADINE HYDROCHLORIDE
     Indication: Urticaria
     Dosage: ONGOING: YES
     Route: 048
     Dates: start: 2019
  11. ALLEGRA [Concomitant]
     Active Substance: FEXOFENADINE HYDROCHLORIDE
     Dosage: AS NEEDED
     Route: 048
     Dates: start: 2019
  12. PREDNISONE [Concomitant]
     Active Substance: PREDNISONE
     Indication: Urticaria
  13. BENADRYL [Concomitant]
     Active Substance: DIPHENHYDRAMINE HYDROCHLORIDE
     Indication: Urticaria
     Dosage: REGULAR DOSE

REACTIONS (5)
  - Swelling face [Recovered/Resolved]
  - Eye swelling [Recovered/Resolved]
  - Urticaria [Not Recovered/Not Resolved]
  - Lip swelling [Recovered/Resolved]
  - Asthma [Not Recovered/Not Resolved]

NARRATIVE: CASE EVENT DATE: 20190101
